FAERS Safety Report 4604316-5 (Version None)
Quarter: 2005Q1

REPORT INFORMATION
  Report Type: 
  Country: None (occurrence: None)
  Receive Date: 20050308
  Receipt Date: 20050222
  Transmission Date: 20050727
  Serious: Yes (Hospitalization)
  Sender: FDA-Public Use
  Company Number: 2004092164

PATIENT
  Age: 56 Year
  Sex: Female
  Weight: 67 kg

DRUGS (5)
  1. BEXTRA [Suspect]
     Indication: TENDONITIS
     Dosage: (20 MG, 1 IN 1 D)
     Dates: start: 20030612, end: 20030619
  2. TAMOXIFEN (TAMOXIFEN) [Concomitant]
  3. RAMIPRIL [Concomitant]
  4. ALENDRONATE SODIUM [Concomitant]
  5. ASPIRIN [Concomitant]

REACTIONS (6)
  - CHEST PAIN [None]
  - ERYTHEMA MULTIFORME [None]
  - HYPERSENSITIVITY [None]
  - STEVENS-JOHNSON SYNDROME [None]
  - TACHYCARDIA [None]
  - URTICARIA [None]
